FAERS Safety Report 13676950 (Version 1)
Quarter: 2017Q2

REPORT INFORMATION
  Report Type: Spontaneous
  Country: US (occurrence: US)
  Receive Date: 20170621
  Receipt Date: 20170621
  Transmission Date: 20170830
  Serious: Yes (Hospitalization)
  Sender: FDA-Public Use
  Company Number: None

PATIENT
  Age: 60 Year
  Sex: Female

DRUGS (16)
  1. TACROLIMUS. [Suspect]
     Active Substance: TACROLIMUS
     Indication: TRANSPLANT
     Route: 048
     Dates: start: 20130814
  2. ALPRAZOLAM. [Concomitant]
     Active Substance: ALPRAZOLAM
  3. BENZONATATE. [Concomitant]
     Active Substance: BENZONATATE
  4. MUCINEX [Concomitant]
     Active Substance: GUAIFENESIN
  5. VITAMIN D [Concomitant]
     Active Substance: CHOLECALCIFEROL
  6. CYCLOBENZAPRINE. [Concomitant]
     Active Substance: CYCLOBENZAPRINE
  7. SENEXON [Concomitant]
     Active Substance: SENNOSIDES A AND B
  8. PANTOPRAZOLE [Concomitant]
     Active Substance: PANTOPRAZOLE
  9. VALACYCLOVIR [Concomitant]
     Active Substance: VALACYCLOVIR HYDROCHLORIDE
  10. ZOLPIDEM [Concomitant]
     Active Substance: ZOLPIDEM\ZOLPIDEM TARTRATE
  11. CALCIUM [Concomitant]
     Active Substance: CALCIUM
  12. GLIMEPIRIDE. [Suspect]
     Active Substance: GLIMEPIRIDE
  13. OXYCODONE [Concomitant]
     Active Substance: OXYCODONE
  14. FERROUS SULFATE. [Concomitant]
     Active Substance: FERROUS SULFATE
  15. TRAZODONE [Concomitant]
     Active Substance: TRAZODONE HYDROCHLORIDE
  16. VITAMIN B [Concomitant]
     Active Substance: VITAMIN B

REACTIONS (3)
  - Therapy change [None]
  - Immunosuppressant drug level decreased [None]
  - Pseudomonas infection [None]

NARRATIVE: CASE EVENT DATE: 201706
